FAERS Safety Report 5423253-X (Version None)
Quarter: 2007Q3

REPORT INFORMATION
  Report Type: 
  Country: None (occurrence: None)
  Receive Date: 20070730
  Receipt Date: 20070313
  Transmission Date: 20080115
  Serious: Yes (Other)
  Sender: FDA-Public Use
  Company Number: 200710247BWH

PATIENT
  Age: 84 Year
  Sex: Male

DRUGS (3)
  1. AVELOX [Suspect]
     Indication: DRUG USE FOR UNKNOWN INDICATION
     Dosage: INTRAVENOUS
     Route: 042
  2. COREG [Concomitant]
  3. CARDIZEM [Concomitant]

REACTIONS (1)
  - TORSADE DE POINTES [None]
